FAERS Safety Report 4395740-7 (Version None)
Quarter: 2004Q3

REPORT INFORMATION
  Report Type: 
  Country: None (occurrence: None)
  Receive Date: 20040707
  Receipt Date: 20040621
  Transmission Date: 20050211
  Serious: No
  Sender: FDA-Public Use
  Company Number: 2004CG01217

PATIENT
  Age: 20 Year
  Sex: Female
  Weight: 100 kg

DRUGS (1)
  1. NAROPIN [Suspect]
     Indication: LOCAL ANAESTHESIA
     Dosage: 5 ML ONCE, IT
     Route: 039
     Dates: start: 20040101, end: 20040101

REACTIONS (5)
  - ANAESTHETIC COMPLICATION [None]
  - CATHETER RELATED COMPLICATION [None]
  - DRUG EXPOSURE DURING PREGNANCY [None]
  - MEDICATION ERROR [None]
  - SPINAL ANAESTHESIA [None]
